FAERS Safety Report 9365123 (Version 1)
Quarter: 2013Q2

REPORT INFORMATION
  Report Type: Report from Study
  Country: AR (occurrence: AR)
  Receive Date: 20130624
  Receipt Date: 20130624
  Transmission Date: 20140414
  Serious: Yes (Hospitalization, Other)
  Sender: FDA-Public Use
  Company Number: PHHY2013AR062790

PATIENT
  Age: 74 Year
  Sex: Male

DRUGS (4)
  1. DIOVAN [Suspect]
     Indication: HYPERTENSION
     Dosage: 2 DF (80MG), DAILY
     Route: 048
  2. DIOVAN [Suspect]
     Dosage: 80 MG, BID (TWICE DAILY)
  3. RASILEZ [Suspect]
     Indication: HYPERTENSION
     Dosage: 150 MG, UNK
     Route: 048
     Dates: start: 2011, end: 2012
  4. LOSARTAN [Suspect]
     Dosage: UNK UKN, UNK

REACTIONS (2)
  - Coronary artery disease [Recovering/Resolving]
  - Arterial occlusive disease [Recovering/Resolving]
